FAERS Safety Report 4799801-X (Version None)
Quarter: 2005Q4

REPORT INFORMATION
  Report Type: 
  Country: None (occurrence: None)
  Receive Date: 20051013
  Receipt Date: 20051013
  Transmission Date: 20060501
  Serious: Yes (Hospitalization)
  Sender: FDA-Public Use
  Company Number: None

PATIENT
  Sex: Male
  Weight: 112.9457 kg

DRUGS (5)
  1. REMICADE [Suspect]
     Indication: CROHN'S DISEASE
     Dosage: 165 MG   Q8 WKS   IV DRIP
     Route: 041
     Dates: start: 20040615, end: 20050531
  2. 6-MP     50 MG [Suspect]
     Indication: CROHN'S DISEASE
     Dosage: 50 MG  QD  PO
     Route: 048
     Dates: start: 20040115, end: 20051012
  3. PENTASA [Concomitant]
  4. ZESTRIL [Concomitant]
  5. TOPROL-XL [Concomitant]

REACTIONS (1)
  - RENAL CELL CARCINOMA STAGE UNSPECIFIED [None]
